FAERS Safety Report 24143470 (Version 3)
Quarter: 2025Q1

REPORT INFORMATION
  Report Type: Report from Study
  Country: KR (occurrence: KR)
  Receive Date: 20240727
  Receipt Date: 20250127
  Transmission Date: 20250409
  Serious: Yes (Hospitalization)
  Sender: ABBVIE
  Company Number: KR-ABBVIE-5849656

PATIENT
  Age: 20 Year
  Sex: Male

DRUGS (13)
  1. RINVOQ [Suspect]
     Active Substance: UPADACITINIB
     Indication: Dermatitis atopic
     Route: 048
     Dates: start: 20231010
  2. POLYBUTINE [Concomitant]
     Indication: Vomiting
     Dosage: SR TAB 300MG?FORM STRENGTH: 300 MILLIGRAM
     Route: 048
     Dates: start: 20240103, end: 20240109
  3. Biotop high [Concomitant]
     Indication: Vomiting
     Dosage: CAP
     Route: 048
     Dates: start: 20240103, end: 20240109
  4. EVOPRIM [Concomitant]
     Indication: Dermatitis atopic
     Dosage: SC
     Route: 048
     Dates: start: 20230529
  5. PROBIOTICS NOS [Concomitant]
     Active Substance: PROBIOTICS NOS
     Indication: Dermatitis atopic
     Dosage: CAP
     Route: 048
     Dates: start: 20231107, end: 20240125
  6. ESPERSON [Concomitant]
     Indication: Dermatitis atopic
     Dosage: LOTION (20ML)
     Route: 061
     Dates: start: 20240126, end: 20240225
  7. RAMOSETRON HYDROCHLORIDE [Concomitant]
     Active Substance: RAMOSETRON HYDROCHLORIDE
     Indication: Product used for unknown indication
     Dosage: FORM STRENGTH: 0.3 MILLIGRAM
     Route: 042
     Dates: start: 20240215, end: 20240215
  8. STILLEN [Concomitant]
     Indication: Product used for unknown indication
     Route: 048
     Dates: start: 20240214, end: 20240222
  9. STILLEN [Concomitant]
     Indication: Product used for unknown indication
     Route: 048
     Dates: start: 20240210, end: 20240212
  10. Topisol [Concomitant]
     Indication: Dermatitis atopic
     Dosage: MILK LOTION 80G?FORM STRENGTH: 80 GRAM
     Route: 061
     Dates: start: 20240126
  11. REBAMIPIDE [Concomitant]
     Active Substance: REBAMIPIDE
     Indication: Vomiting
     Dosage: SR TAB 150MG?FORM STRENGTH: 150 MILLIGRAM
     Route: 048
     Dates: start: 20240103, end: 20240109
  12. TWOLION [Concomitant]
     Indication: Dermatitis atopic
     Dosage: TAB
     Route: 048
     Dates: start: 20230529, end: 20240321
  13. Ebastel boryung [Concomitant]
     Indication: Dermatitis atopic
     Dosage: TAB
     Route: 048
     Dates: start: 20230529

REACTIONS (1)
  - Ureterolithiasis [Recovered/Resolved]

NARRATIVE: CASE EVENT DATE: 20240210
